FAERS Safety Report 7116665-X (Version None)
Quarter: 2010Q4

REPORT INFORMATION
  Report Type: 
  Country: None (occurrence: None)
  Receive Date: 20101122
  Receipt Date: 20101119
  Transmission Date: 20110411
  Serious: Yes (Hospitalization)
  Sender: FDA-Public Use
  Company Number: A0894410A

PATIENT
  Age: 57 Year
  Sex: Male

DRUGS (2)
  1. AVANDAMET [Suspect]
     Dosage: 4MG PER DAY
     Route: 048
     Dates: start: 20070904, end: 20071130
  2. AVANDIA [Suspect]
     Route: 048
     Dates: start: 20020516, end: 20060215

REACTIONS (1)
  - MYOCARDIAL INFARCTION [None]
